FAERS Safety Report 6634875-2 (Version None)
Quarter: 2010Q1

REPORT INFORMATION
  Report Type: 
  Country: None (occurrence: None)
  Receive Date: 20100315
  Receipt Date: 20100304
  Transmission Date: 20100710
  Serious: Yes (Other)
  Sender: FDA-Public Use
  Company Number: US-PFIZER INC-2010028770

PATIENT
  Sex: Female
  Weight: 82.902 kg

DRUGS (8)
  1. NICOTROL [Suspect]
     Indication: SMOKING CESSATION THERAPY
     Dosage: UNK
     Dates: start: 20100303, end: 20100301
  2. CHANTIX [Suspect]
     Indication: SMOKING CESSATION THERAPY
     Dosage: UNK
     Route: 048
     Dates: start: 20090601, end: 20090801
  3. PREMARIN [Concomitant]
     Dosage: 0.625 MG, UNK
  4. ZYPREXA [Concomitant]
     Dosage: UNK
  5. TRAZODONE [Concomitant]
     Dosage: UNK
  6. AMBIEN [Concomitant]
     Dosage: UNK
  7. SOMA [Concomitant]
     Dosage: UNK
  8. HYDROCODONE BITARTRATE AND IBUPROFEN [Concomitant]
     Dosage: UNK

REACTIONS (4)
  - BLOOD DISORDER [None]
  - BURNING SENSATION [None]
  - PLATELET COUNT DECREASED [None]
  - STRESS [None]
